FAERS Safety Report 8776890 (Version 1)
Quarter: 2012Q4

REPORT INFORMATION
  Report Type: 
  Country: IT (occurrence: IT)
  Receive Date: 20120911
  Receipt Date: 20120911
  Transmission Date: 20130627
  Serious: Yes (Hospitalization, Other)
  Sender: FDA-Public Use
  Company Number: IT-PFIZER INC-2012221249

PATIENT
  Age: 57 Year
  Sex: Female

DRUGS (2)
  1. SUNITINIB MALATE [Suspect]
     Indication: RENAL CELL CARCINOMA
     Dosage: 50 mg, per day for 4 weeks every 6 weeks
     Dates: start: 200701
  2. SUNITINIB MALATE [Suspect]
     Dosage: 12.5 mg, per day

REACTIONS (7)
  - Intracardiac thrombus [Recovered/Resolved]
  - Stress cardiomyopathy [Recovering/Resolving]
  - Palmar-plantar erythrodysaesthesia syndrome [Unknown]
  - Fatigue [Unknown]
  - Rash [Unknown]
  - Hypothyroidism [Unknown]
  - Hypertension [Unknown]
